FAERS Safety Report 9555101 (Version 1)
Quarter: 2013Q3

REPORT INFORMATION
  Report Type: Spontaneous
  Country: US (occurrence: None)
  Receive Date: 20130724
  Receipt Date: 20130724
  Transmission Date: 20140515
  Serious: No
  Sender: FDA-Public Use
  Company Number: PHEH2013US006024

PATIENT
  Sex: Female

DRUGS (7)
  1. GILENYA (FINGOLIMOD) [Suspect]
     Route: 048
  2. SYNTHROID (LEVOTHYROXINE SODIUM) [Concomitant]
  3. ADDERALL (AMFETAMINE ASPARTATE, ANFETAMINE  SULFATE, DEXAMFETAMINE SACCHARATE, DEXAMFETAMINE SULFATE) [Concomitant]
  4. ZOLOFT (SERTRALINE HYDROCHLORIDE) [Concomitant]
  5. OXYBUTYNIN (OXYBUTYNIN) [Concomitant]
  6. LORTAB (HYDROCODONE BITARTRATE, PARACETAMOL) [Concomitant]
  7. AMOXIL (AMOXILLIN TRIHYDRATE) [Concomitant]

REACTIONS (2)
  - Hypoaesthesia [None]
  - Vision blurred [None]
